FAERS Safety Report 24258923 (Version 3)
Quarter: 2025Q3

REPORT INFORMATION
  Report Type: Report from Study
  Country: EU (occurrence: EU)
  Receive Date: 20240828
  Receipt Date: 20250702
  Transmission Date: 20251021
  Serious: Yes (Hospitalization, Congenital Anomaly)
  Sender: PFIZER
  Company Number: None

PATIENT
  Sex: Female
  Weight: 2 kg

DRUGS (1)
  1. RITUXIMAB [Suspect]
     Active Substance: RITUXIMAB
     Route: 064
     Dates: start: 20230803, end: 20230803

REACTIONS (5)
  - Maternal exposure during pregnancy [Recovered/Resolved]
  - Neonatal hypoacusis [Not Recovered/Not Resolved]
  - Cleft palate [Recovered/Resolved]
  - Microcephaly [Not Recovered/Not Resolved]
  - Low birth weight baby [Recovered/Resolved]

NARRATIVE: CASE EVENT DATE: 20240311
